FAERS Safety Report 8611010-2 (Version None)
Quarter: 2012Q3

REPORT INFORMATION
  Report Type: 
  Country: None (occurrence: None)
  Receive Date: 20120822
  Receipt Date: 20120816
  Transmission Date: 20120928
  Serious: Yes (Hospitalization)
  Sender: FDA-Public Use
  Company Number: US-PFIZER INC-2012201144

PATIENT
  Age: 61 Year
  Sex: Female
  Weight: 109 kg

DRUGS (5)
  1. VERAPAMIL [Concomitant]
     Indication: HYPERTENSION
     Dosage: 180 MG, 2X/DAY
  2. DETROL LA [Suspect]
     Indication: BLADDER DISORDER
     Dosage: 4 MG, 1X/DAY
     Dates: start: 20110101
  3. METFORMIN [Concomitant]
     Indication: DIABETES MELLITUS
     Dosage: 500 MG, 2X/DAY
  4. PRILOSEC [Concomitant]
     Indication: FLATULENCE
     Dosage: 20 MG, 1X/DAY
  5. FUROSEMIDE [Concomitant]
     Indication: DIURETIC THERAPY
     Dosage: 20 MG, 1X/DAY

REACTIONS (1)
  - CHONDROPATHY [None]
